FAERS Safety Report 6256422-X (Version None)
Quarter: 2009Q3

REPORT INFORMATION
  Report Type: 
  Country: None (occurrence: None)
  Receive Date: 20090701
  Receipt Date: 20090701
  Transmission Date: 20100115
  Serious: Yes (Other)
  Sender: FDA-Public Use
  Company Number: None

PATIENT
  Age: 49 Year
  Sex: Female
  Weight: 78.0187 kg

DRUGS (1)
  1. BENZONATATE [Suspect]
     Indication: COUGH
     Dosage: 2 CAPSULES PO
     Route: 048
     Dates: start: 20090629, end: 20090629

REACTIONS (4)
  - COUGH [None]
  - DYSPHAGIA [None]
  - PHARYNGEAL HYPOAESTHESIA [None]
  - REGURGITATION [None]
